FAERS Safety Report 6163703-7 (Version None)
Quarter: 2009Q2

REPORT INFORMATION
  Report Type: 
  Country: None (occurrence: None)
  Receive Date: 20090420
  Receipt Date: 20090420
  Transmission Date: 20091009
  Serious: Yes (Other)
  Sender: FDA-Public Use
  Company Number: None

PATIENT
  Age: 68 Year
  Sex: Female
  Weight: 96.1626 kg

DRUGS (2)
  1. LYRICA [Suspect]
     Indication: FIBROMYALGIA
     Dosage: ONE CAPSULE 2X DAILY PO
     Route: 048
     Dates: start: 20071120, end: 20080424
  2. LYRICA [Suspect]
     Indication: NERVE INJURY
     Dosage: ONE CAPSULE 2X DAILY PO
     Route: 048
     Dates: start: 20071120, end: 20080424

REACTIONS (4)
  - DYSSTASIA [None]
  - MUSCULAR WEAKNESS [None]
  - URINARY INCONTINENCE [None]
  - WEIGHT INCREASED [None]
